FAERS Safety Report 6845674-0 (Version None)
Quarter: 2010Q3

REPORT INFORMATION
  Report Type: 
  Country: None (occurrence: None)
  Receive Date: 20100715
  Receipt Date: 20070827
  Transmission Date: 20110219
  Serious: No
  Sender: FDA-Public Use
  Company Number: US-PFIZER INC-2007072850

PATIENT
  Sex: Female
  Weight: 72.6 kg

DRUGS (8)
  1. CHANTIX [Suspect]
     Indication: SMOKING CESSATION THERAPY
     Dates: start: 20070822
  2. HYDROCHLOROTHIAZIDE [Concomitant]
  3. CYMBALTA [Concomitant]
     Indication: ANXIETY
  4. ANASTROZOLE [Concomitant]
  5. CALCIUM WITH VITAMIN D [Concomitant]
  6. MULTI-VITAMINS [Concomitant]
  7. VITAMIN C [Concomitant]
  8. VITAMIN E [Concomitant]

REACTIONS (4)
  - ABDOMINAL DISCOMFORT [None]
  - ABDOMINAL PAIN [None]
  - FEELING ABNORMAL [None]
  - NAUSEA [None]
